FAERS Safety Report 23345822 (Version 3)
Quarter: 2024Q1

REPORT INFORMATION
  Report Type: Spontaneous
  Country: GB (occurrence: GB)
  Receive Date: 20231228
  Receipt Date: 20240109
  Transmission Date: 20240410
  Serious: Yes (Hospitalization, Other)
  Sender: FDA-Public Use
  Company Number: GB-MYLANLABS-2023M1128933

PATIENT
  Sex: Male

DRUGS (1)
  1. CLOZARIL [Suspect]
     Active Substance: CLOZAPINE
     Indication: Schizophrenia
     Dosage: UNK
     Route: 048
     Dates: start: 20231204, end: 20231221

REACTIONS (4)
  - Malaise [Unknown]
  - Infection [Unknown]
  - Thrombocytopenia [Unknown]
  - Off label use [Unknown]

NARRATIVE: CASE EVENT DATE: 20231204
